FAERS Safety Report 8025980-7 (Version None)
Quarter: 2012Q1

REPORT INFORMATION
  Report Type: 
  Country: None (occurrence: None)
  Receive Date: 20120105
  Receipt Date: 20110928
  Transmission Date: 20120608
  Serious: No
  Sender: FDA-Public Use
  Company Number: US-ABBOTT-11P-163-0858881-00

PATIENT
  Age: 67 Year
  Sex: Female
  Weight: 72.64 kg

DRUGS (4)
  1. LEVOXYL [Suspect]
     Indication: HYPOTHYROIDISM
  2. ATENOLOL [Concomitant]
     Indication: HYPERTENSION
  3. SYNTHROID [Suspect]
     Indication: HYPOTHYROIDISM
     Dates: start: 20110101
  4. HYZAAR [Concomitant]
     Indication: HYPERTENSION
     Dosage: 100/25 MG

REACTIONS (1)
  - ALOPECIA [None]
